FAERS Safety Report 25007198 (Version 1)
Quarter: 2025Q1

REPORT INFORMATION
  Report Type: Other
  Country: DE (occurrence: DE)
  Receive Date: 20250225
  Receipt Date: 20250225
  Transmission Date: 20250409
  Serious: Yes (Hospitalization, Other)
  Sender: INNOGENIX, LLC
  Company Number: DE-Innogenix, LLC-2171764

PATIENT
  Age: 52 Year
  Sex: Female

DRUGS (4)
  1. METRONIDAZOLE [Suspect]
     Active Substance: METRONIDAZOLE
     Indication: Clostridium difficile colitis
  2. CEFAZOLIN SODIUM [Concomitant]
     Active Substance: CEFAZOLIN SODIUM
  3. URAPIDIL [Concomitant]
     Active Substance: URAPIDIL
  4. Jonosterile [Concomitant]

REACTIONS (1)
  - Posterior reversible encephalopathy syndrome [Recovered/Resolved]
